FAERS Safety Report 12635472 (Version 4)
Quarter: 2017Q1

REPORT INFORMATION
  Report Type: Report from Study
  Country: JP (occurrence: JP)
  Receive Date: 20160809
  Receipt Date: 20170323
  Transmission Date: 20170428
  Serious: Yes (Other)
  Sender: FDA-Public Use
  Company Number: JP-INCYTE CORPORATION-2016IN004743

PATIENT
  Age: 66 Year
  Sex: Male

DRUGS (1)
  1. JAKAVI [Suspect]
     Active Substance: RUXOLITINIB
     Indication: PRIMARY MYELOFIBROSIS
     Dosage: 7 MG, QD (10 MG, 3 DAYS A WEEK AND 5 MG, 4 DAYS A WEEK)
     Route: 048
     Dates: start: 20151125

REACTIONS (6)
  - White blood cell count increased [Unknown]
  - Platelet count decreased [Recovering/Resolving]
  - Red blood cell count decreased [Unknown]
  - Bone marrow failure [Recovering/Resolving]
  - Bone marrow failure [Recovered/Resolved]
  - Platelet count increased [Unknown]

NARRATIVE: CASE EVENT DATE: 20160106
